FAERS Safety Report 5522112-1 (Version None)
Quarter: 2007Q4

REPORT INFORMATION
  Report Type: 
  Country: None (occurrence: None)
  Receive Date: 20071115
  Receipt Date: 20071029
  Transmission Date: 20080405
  Serious: Yes (Death)
  Sender: FDA-Public Use
  Company Number: 8027783

PATIENT
  Age: 31 Year
  Sex: Male

DRUGS (4)
  1. PREDNISOLONE [Suspect]
     Indication: EOSINOPHILIA
     Dosage: 20 MG /D PO
     Route: 048
  2. PREDNISOLONE [Suspect]
     Indication: PAIN
     Dosage: 20 MG /D PO
     Route: 048
  3. RANITIDINE HCL [Concomitant]
  4. ANTIBIOTICS [Concomitant]

REACTIONS (7)
  - ABDOMINAL PAIN [None]
  - GASTRIC LAVAGE ABNORMAL [None]
  - HAEMATEMESIS [None]
  - MELAENA [None]
  - MULTI-ORGAN FAILURE [None]
  - PARASITE BLOOD TEST POSITIVE [None]
  - STRONGYLOIDIASIS [None]
